FAERS Safety Report 6315881-4 (Version None)
Quarter: 2009Q3

REPORT INFORMATION
  Report Type: 
  Country: None (occurrence: None)
  Receive Date: 20090820
  Receipt Date: 20090812
  Transmission Date: 20100115
  Serious: Yes (Hospitalization)
  Sender: FDA-Public Use
  Company Number: MX-ELI_LILLY_AND_COMPANY-MX200907006690

PATIENT
  Age: 65 Year
  Sex: Female
  Weight: 70 kg

DRUGS (4)
  1. HUMALOG MIX 75/25 [Suspect]
     Indication: TYPE 2 DIABETES MELLITUS
     Dosage: 24 U, EACH MORNING
     Route: 058
     Dates: start: 20090501, end: 20090721
  2. HUMALOG MIX 75/25 [Suspect]
     Dosage: 16 U, EACH EVENING
     Route: 058
     Dates: start: 20090501
  3. SINGULAIR [Concomitant]
     Dosage: 20 MG, EACH EVENING
     Route: 065
  4. NPH INSULIN [Concomitant]

REACTIONS (2)
  - FRACTURE NONUNION [None]
  - WOUND NECROSIS [None]
